FAERS Safety Report 5196163-3 (Version None)
Quarter: 2006Q4

REPORT INFORMATION
  Report Type: 
  Country: None (occurrence: None)
  Receive Date: 20061222
  Receipt Date: 20061208
  Transmission Date: 20070319
  Serious: Yes (Life-Threatening, Hospitalization)
  Sender: FDA-Public Use
  Company Number: DSA_29120_2006

PATIENT
  Age: 44 Year
  Sex: Male

DRUGS (2)
  1. TAVOR [Suspect]
     Dosage: 10 MG ONCE PO
     Route: 048
     Dates: start: 20061207, end: 20061207
  2. ZOPICLONE [Suspect]
     Dosage: DF ONCE PO
     Route: 048
     Dates: start: 20061207, end: 20061207

REACTIONS (4)
  - DEHYDRATION [None]
  - FATIGUE [None]
  - MULTIPLE DRUG OVERDOSE INTENTIONAL [None]
  - SUICIDE ATTEMPT [None]
